FAERS Safety Report 4847974-2 (Version None)
Quarter: 2005Q4

REPORT INFORMATION
  Report Type: 
  Country: None (occurrence: None)
  Receive Date: 20051206
  Receipt Date: 20051206
  Transmission Date: 20060501
  Serious: No
  Sender: FDA-Public Use
  Company Number: None

PATIENT
  Age: 45 Year
  Sex: Female
  Weight: 54.8852 kg

DRUGS (1)
  1. LITHIUM [Suspect]
     Indication: BIPOLAR DISORDER
     Dosage: PO   (THERAPY DATES: MANY YEARS (5 YEARS) )
     Route: 048

REACTIONS (3)
  - DIALYSIS [None]
  - NEPHRITIS INTERSTITIAL [None]
  - RENAL FAILURE CHRONIC [None]
